FAERS Safety Report 15922438 (Version 1)
Quarter: 2019Q1

REPORT INFORMATION
  Report Type: Spontaneous
  Country: US (occurrence: US)
  Receive Date: 20190115
  Receipt Date: 20190115
  Transmission Date: 20190417
  Serious: No
  Sender: FDA-Public Use
  Company Number: None

PATIENT
  Age: 66 Year
  Sex: Female

DRUGS (1)
  1. HARVONI [Suspect]
     Active Substance: LEDIPASVIR\SOFOSBUVIR
     Indication: CHRONIC HEPATITIS C
     Route: 048
     Dates: start: 201812

REACTIONS (5)
  - Pruritus [None]
  - Dizziness [None]
  - Constipation [None]
  - Product dose omission [None]
  - Vision blurred [None]

NARRATIVE: CASE EVENT DATE: 20190115
